FAERS Safety Report 5526501-0 (Version None)
Quarter: 2007Q4

REPORT INFORMATION
  Report Type: 
  Country: None (occurrence: None)
  Receive Date: 20071121
  Receipt Date: 20071121
  Transmission Date: 20080405
  Serious: Yes (Hospitalization, Disabling)
  Sender: FDA-Public Use
  Company Number: None

PATIENT
  Age: 26 Day
  Sex: Female
  Weight: 4 kg

DRUGS (1)
  1. ERYTHROMYCIN ETHYLSUCCINATE [Suspect]
     Indication: PNEUMONIA
     Dosage: 1ML -40MG- = QID PO
     Route: 048
     Dates: start: 20071114, end: 20071115

REACTIONS (6)
  - DEHYDRATION [None]
  - HAEMATEMESIS [None]
  - IMPAIRED GASTRIC EMPTYING [None]
  - PYLORIC STENOSIS [None]
  - VOMITING [None]
  - VOMITING PROJECTILE [None]
